FAERS Safety Report 10521548 (Version 1)
Quarter: 2014Q4

REPORT INFORMATION
  Report Type: Other
  Country: GB (occurrence: GB)
  Receive Date: 20141016
  Receipt Date: 20141016
  Transmission Date: 20150528
  Serious: Yes (Other)
  Sender: FDA-Public Use
  Company Number: GB-SUN PHARMACEUTICAL INDUSTRIES LTD-2014SUN02116

PATIENT

DRUGS (1)
  1. LETROZOLE 2.5 MG FILMCOATED TABLETS [Suspect]
     Active Substance: LETROZOLE
     Indication: OESTROGEN RECEPTOR POSITIVE BREAST CANCER
     Dosage: 2.5 MG, UNK
     Route: 048
     Dates: start: 20121214

REACTIONS (7)
  - Hypoaesthesia [Unknown]
  - Hot flush [Recovered/Resolved]
  - Paraesthesia [Recovering/Resolving]
  - Carpal tunnel syndrome [Recovering/Resolving]
  - Product substitution issue [None]
  - Food interaction [Unknown]
  - Pain [Recovered/Resolved]
